FAERS Safety Report 9827735 (Version 1)
Quarter: 2014Q1

REPORT INFORMATION
  Report Type: Spontaneous
  Country: GB (occurrence: GB)
  Receive Date: 20140117
  Receipt Date: 20140117
  Transmission Date: 20141002
  Serious: Yes (Hospitalization)
  Sender: FDA-Public Use
  Company Number: GB-VERTEX PHARMACEUTICALS INC-2014-000222

PATIENT
  Age: 52 Year
  Sex: 0

DRUGS (9)
  1. INCIVO [Suspect]
     Indication: HEPATITIS C
     Dosage: 1125 MG, BID
     Route: 048
     Dates: start: 20131101, end: 20140103
  2. PEGINTERFERON ALFA 2A [Concomitant]
     Dosage: DOSAGE FORM: UNKNOWN
     Route: 065
  3. RIBAVIRIN [Concomitant]
     Dosage: DOSAGE FORM: UNKNOWN
     Route: 065
  4. LEVETIRACETAM [Concomitant]
  5. LITHIUM CARBONATE [Concomitant]
  6. PARACETAMOL [Concomitant]
  7. PIRITON [Concomitant]
  8. SENNA [Concomitant]
  9. SIMVASTATIN [Concomitant]

REACTIONS (4)
  - Pyrexia [Unknown]
  - Face oedema [Unknown]
  - Skin reaction [Recovered/Resolved]
  - Rash [Unknown]
